FAERS Safety Report 5833273-9 (Version None)
Quarter: 2008Q3

REPORT INFORMATION
  Report Type: 
  Country: None (occurrence: None)
  Receive Date: 20080804
  Receipt Date: 20080804
  Transmission Date: 20090109
  Serious: No
  Sender: FDA-Public Use
  Company Number: None

PATIENT
  Sex: Female
  Weight: 53.978 kg

DRUGS (2)
  1. GENERIC ORTHO CYCLEN [Suspect]
     Indication: DYSMENORRHOEA
     Dosage: 1 TAB DAILY
  2. GENERIC ORTHO CYCLEN [Suspect]
     Indication: MENORRHAGIA
     Dosage: 1 TAB DAILY

REACTIONS (4)
  - DIARRHOEA [None]
  - MENORRHAGIA [None]
  - METRORRHAGIA [None]
  - PHARMACEUTICAL PRODUCT COMPLAINT [None]
